FAERS Safety Report 8548497-X (Version None)
Quarter: 2012Q3

REPORT INFORMATION
  Report Type: 
  Country: None (occurrence: None)
  Receive Date: 20120730
  Receipt Date: 20120723
  Transmission Date: 20120928
  Serious: Yes (Hospitalization)
  Sender: FDA-Public Use
  Company Number: GB-009507513-1207GBR010849

PATIENT

DRUGS (1)
  1. NEXPLANON [Suspect]

REACTIONS (2)
  - ADVERSE EVENT [None]
  - DEVICE BREAKAGE [None]
